FAERS Safety Report 13674276 (Version 1)
Quarter: 2017Q2

REPORT INFORMATION
  Report Type: Report from Study
  Country: IE (occurrence: IE)
  Receive Date: 20170621
  Receipt Date: 20170621
  Transmission Date: 20170830
  Serious: Yes (Other)
  Sender: FDA-Public Use
  Company Number: PHFR2015GB001610

PATIENT
  Sex: Male

DRUGS (1)
  1. MIDOSTAURIN [Suspect]
     Active Substance: MIDOSTAURIN
     Indication: SYSTEMIC MASTOCYTOSIS
     Dosage: 100 MG, BID
     Route: 048
     Dates: start: 201408, end: 201501

REACTIONS (5)
  - Pain [Unknown]
  - Abdominal pain [Unknown]
  - Tryptase increased [Unknown]
  - Skin disorder [Unknown]
  - Gastrointestinal disorder [Recovered/Resolved]
